FAERS Safety Report 26022341 (Version 2)
Quarter: 2025Q4

REPORT INFORMATION
  Report Type: Spontaneous
  Country: EU (occurrence: EU)
  Receive Date: 20251110
  Receipt Date: 20251114
  Transmission Date: 20260117
  Serious: Yes (Hospitalization, Other)
  Sender: SANOFI AVENTIS
  Company Number: EU-SA-2025SA334059

PATIENT
  Age: 55 Year
  Sex: Male

DRUGS (4)
  1. DUPIXENT [Suspect]
     Active Substance: DUPILUMAB
     Indication: Asthma
     Dosage: 300 MG, QOW
     Route: 058
  2. DUPIXENT [Suspect]
     Active Substance: DUPILUMAB
     Indication: Chronic rhinosinusitis with nasal polyps
  3. DOXYCYCLINE [Concomitant]
     Active Substance: DOXYCYCLINE
     Indication: Upper respiratory tract infection
     Dosage: UNK
  4. FLUTICASONE FUROATE\VILANTEROL TRIFENATATE [Concomitant]
     Active Substance: FLUTICASONE FUROATE\VILANTEROL TRIFENATATE
     Dosage: 184 MG 22 MG
     Route: 055

REACTIONS (16)
  - Hypereosinophilic syndrome [Recovered/Resolved]
  - Eosinophilic pneumonia [Recovered/Resolved]
  - Rash pruritic [Recovered/Resolved]
  - Night sweats [Recovered/Resolved]
  - Myalgia [Recovered/Resolved]
  - Erythema [Recovered/Resolved]
  - Skin plaque [Recovered/Resolved]
  - Rash [Recovered/Resolved]
  - Dermatitis [Recovered/Resolved]
  - Skin swelling [Recovered/Resolved]
  - Leukocytosis [Recovered/Resolved]
  - Lung infiltration [Recovered/Resolved]
  - Lymphadenopathy mediastinal [Recovered/Resolved]
  - Hilar lymphadenopathy [Recovered/Resolved]
  - Neutrophilia [Recovered/Resolved]
  - Skin lesion [Recovered/Resolved]
